FAERS Safety Report 7381938-2 (Version None)
Quarter: 2011Q1

REPORT INFORMATION
  Report Type: 
  Country: None (occurrence: None)
  Receive Date: 20110324
  Receipt Date: 20110324
  Transmission Date: 20110831
  Serious: Yes (Other)
  Sender: FDA-Public Use
  Company Number: None

PATIENT
  Sex: Male
  Weight: 10.8863 kg

DRUGS (2)
  1. COTTONTAILS CREAMYDIAPERRASHOI ZINC OXIDE 10%  PFIZER CONSUMER HEALTHC [Suspect]
     Indication: SKIN IRRITATION
     Dosage: LIBERALLY AS NEEDED TOP
     Route: 061
     Dates: start: 20110216, end: 20110308
  2. COTTONTAILS CREAMYDIAPERRASHOI ZINC OXIDE 10%  PFIZER CONSUMER HEALTHC [Suspect]
     Indication: SKIN BURNING SENSATION
     Dosage: LIBERALLY AS NEEDED TOP
     Route: 061
     Dates: start: 20110216, end: 20110308

REACTIONS (2)
  - SCREAMING [None]
  - CRYING [None]
